FAERS Safety Report 4799989-0 (Version None)
Quarter: 2005Q4

REPORT INFORMATION
  Report Type: 
  Country: None (occurrence: None)
  Receive Date: 20051017
  Receipt Date: 20051005
  Transmission Date: 20060501
  Serious: Yes (Hospitalization, Other)
  Sender: FDA-Public Use
  Company Number: PHNU2005DE03393

PATIENT
  Sex: Male

DRUGS (1)
  1. LOCOL [Suspect]
     Dosage: 1 DF, QD
     Route: 048

REACTIONS (2)
  - FALL [None]
  - THROMBOCYTHAEMIA [None]
